FAERS Safety Report 9924854 (Version 1)
Quarter: 2014Q1

REPORT INFORMATION
  Report Type: Spontaneous
  Country: US (occurrence: US)
  Receive Date: 20140226
  Receipt Date: 20140226
  Transmission Date: 20141002
  Serious: No
  Sender: FDA-Public Use
  Company Number: US-BAYER-2014-029149

PATIENT
  Age: 76 Year
  Sex: Female
  Weight: 76 kg

DRUGS (6)
  1. ALEVE CAPLET [Suspect]
     Indication: ANALGESIC THERAPY
     Dosage: 1 DF, PRN
     Route: 048
     Dates: start: 201402
  2. ALEVE CAPLET [Suspect]
     Indication: ARTHRALGIA
  3. BAYER ASPIRIN REGIMEN ADULT LOW STRENGTH [Suspect]
     Indication: ISCHAEMIC HEART DISEASE PROPHYLAXIS
     Dosage: 1 DF, QOD
     Route: 048
  4. VITAMIN D3 [Concomitant]
  5. COQ10 [Concomitant]
  6. GLUCOSAMINE [Concomitant]

REACTIONS (3)
  - Drug ineffective [None]
  - Intentional drug misuse [None]
  - Drug ineffective [None]
